FAERS Safety Report 23445152 (Version 2)
Quarter: 2024Q2

REPORT INFORMATION
  Report Type: Spontaneous
  Country: US (occurrence: US)
  Receive Date: 20240125
  Receipt Date: 20240419
  Transmission Date: 20240716
  Serious: No
  Sender: FDA-Public Use
  Company Number: US-SANDOZ-SDZ2024US008087

PATIENT
  Sex: Female

DRUGS (1)
  1. ESTRADIOL [Suspect]
     Active Substance: ESTRADIOL
     Indication: Product used for unknown indication
     Dosage: 0.06 MG, QD
     Route: 065

REACTIONS (2)
  - Application site irritation [Unknown]
  - Product adhesion issue [Unknown]

NARRATIVE: CASE EVENT DATE: 20240108
